FAERS Safety Report 5738514-4 (Version None)
Quarter: 2008Q2

REPORT INFORMATION
  Report Type: 
  Country: None (occurrence: None)
  Receive Date: 20080513
  Receipt Date: 20080428
  Transmission Date: 20081010
  Serious: Yes (Death, Other)
  Sender: FDA-Public Use
  Company Number: 100#08#2008-02508

PATIENT
  Age: 11 Month
  Sex: Female

DRUGS (2)
  1. METHYLPREDNISOLONE [Suspect]
     Indication: DRUG USE FOR UNKNOWN INDICATION
     Dosage: 10 MG/KG
  2. DEFEROXAMINE (DEFEROXAMINE) [Suspect]
     Indication: DRUG USE FOR UNKNOWN INDICATION
     Dosage: 15-30 MG/KG

REACTIONS (8)
  - CATHETER SITE RELATED REACTION [None]
  - DISEASE COMPLICATION [None]
  - ESCHAR [None]
  - INDURATION [None]
  - INFECTION [None]
  - NECROSIS [None]
  - SWELLING [None]
  - ZYGOMYCOSIS [None]
